FAERS Safety Report 18057240 (Version 6)
Quarter: 2024Q2

REPORT INFORMATION
  Report Type: Spontaneous
  Country: DE (occurrence: DE)
  Receive Date: 20200723
  Receipt Date: 20240427
  Transmission Date: 20240716
  Serious: Yes (Death, Hospitalization, Other)
  Sender: FDA-Public Use
  Company Number: DE-CELLTRION INC.-2020DE024562

PATIENT

DRUGS (3)
  1. RITUXIMAB [Suspect]
     Active Substance: RITUXIMAB
     Indication: Chronic lymphocytic leukaemia
     Dosage: UNK
     Route: 065
     Dates: start: 201811
  2. FLUDARABINE PHOSPHATE [Suspect]
     Active Substance: FLUDARABINE PHOSPHATE
     Indication: Chronic lymphocytic leukaemia
     Dosage: UNK
     Route: 065
     Dates: start: 201811
  3. CYCLOPHOSPHAMIDE [Suspect]
     Active Substance: CYCLOPHOSPHAMIDE
     Indication: Chronic lymphocytic leukaemia
     Dosage: UNK
     Route: 065
     Dates: start: 201811

REACTIONS (6)
  - JC virus infection [Fatal]
  - Progressive multifocal leukoencephalopathy [Fatal]
  - Vision blurred [Fatal]
  - Chronic lymphocytic leukaemia [Fatal]
  - Disease progression [Fatal]
  - Infection reactivation [Not Recovered/Not Resolved]

NARRATIVE: CASE EVENT DATE: 20190101
